FAERS Safety Report 15848493 (Version 2)
Quarter: 2020Q3

REPORT INFORMATION
  Report Type: Spontaneous
  Country: PT (occurrence: PT)
  Receive Date: 20190121
  Receipt Date: 20200805
  Transmission Date: 20201102
  Serious: Yes (Other)
  Sender: FDA-Public Use
  Company Number: PT-MYLANLABS-2019M1004594

PATIENT
  Age: 54 Year
  Sex: Male

DRUGS (1)
  1. METHOTREXATE. [Suspect]
     Active Substance: METHOTREXATE
     Indication: SYNOVITIS
     Dosage: UNK

REACTIONS (6)
  - Pulmonary tuberculosis [Unknown]
  - Condition aggravated [Unknown]
  - Off label use [Unknown]
  - Disseminated tuberculosis [Unknown]
  - Joint tuberculosis [Unknown]
  - Tuberculosis of central nervous system [Unknown]
